FAERS Safety Report 16312394 (Version 1)
Quarter: 2019Q2

REPORT INFORMATION
  Report Type: Spontaneous
  Country: IT (occurrence: IT)
  Receive Date: 20190515
  Receipt Date: 20190515
  Transmission Date: 20190711
  Serious: Yes (Death, Other)
  Sender: FDA-Public Use
  Company Number: IT-AMGEN-ITASP2019075769

PATIENT
  Age: 60 Year
  Sex: Male

DRUGS (5)
  1. XIGDUO XR [Concomitant]
     Active Substance: DAPAGLIFLOZIN PROPANEDIOL\METFORMIN HYDROCHLORIDE
     Dosage: UNK
  2. MOBIC [Concomitant]
     Active Substance: MELOXICAM
     Dosage: UNK
  3. ENBREL [Suspect]
     Active Substance: ETANERCEPT
     Indication: PRODUCT USED FOR UNKNOWN INDICATION
     Dosage: 50 MG, WEEKLY
     Route: 065
  4. FOSAVANCE [Concomitant]
     Active Substance: ALENDRONATE SODIUM\CHOLECALCIFEROL
     Dosage: UNK
  5. SIMVASTATIN. [Concomitant]
     Active Substance: SIMVASTATIN
     Dosage: UNK

REACTIONS (9)
  - Vomiting [Fatal]
  - Hyperpyrexia [Fatal]
  - Haematuria [Fatal]
  - Haptoglobin increased [Unknown]
  - Polydipsia [Fatal]
  - Nausea [Fatal]
  - Coombs test positive [Unknown]
  - Blood lactate dehydrogenase increased [Unknown]
  - Anaemia [Unknown]

NARRATIVE: CASE EVENT DATE: 20190227
